FAERS Safety Report 18897599 (Version 4)
Quarter: 2021Q2

REPORT INFORMATION
  Report Type: Report from Study
  Country: US (occurrence: US)
  Receive Date: 20210215
  Receipt Date: 20210605
  Transmission Date: 20210717
  Serious: No
  Sender: FDA-Public Use
  Company Number: NVSC2021US027749

PATIENT
  Sex: Female

DRUGS (1)
  1. PIQRAY [Suspect]
     Active Substance: ALPELISIB
     Indication: PRODUCT USED FOR UNKNOWN INDICATION
     Dosage: UNK
     Route: 048

REACTIONS (13)
  - Product availability issue [Unknown]
  - Decreased appetite [Unknown]
  - Pain [Unknown]
  - Blood glucose increased [Unknown]
  - Diarrhoea [Unknown]
  - Alveolar osteitis [Unknown]
  - Dyspnoea [Unknown]
  - Product supply issue [Unknown]
  - Nausea [Unknown]
  - Headache [Unknown]
  - Urinary tract infection [Unknown]
  - Alopecia [Unknown]
  - Abdominal discomfort [Unknown]
